FAERS Safety Report 6992373-0 (Version None)
Quarter: 2010Q3

REPORT INFORMATION
  Report Type: 
  Country: None (occurrence: None)
  Receive Date: 20100917
  Receipt Date: 20100913
  Transmission Date: 20110219
  Serious: Yes (Other)
  Sender: FDA-Public Use
  Company Number: US-B.I. PHARMACEUTICALS,INC./RIDGEFIELD-2010-BP-10449YA

PATIENT
  Sex: Male

DRUGS (3)
  1. TAMSULOSIN HCL [Suspect]
     Route: 048
  2. LIPITOR [Suspect]
     Route: 048
  3. PRILOSEC (OMEPRAZOLE) [Suspect]
     Route: 048

REACTIONS (3)
  - BACK PAIN [None]
  - DRUG INTERACTION [None]
  - TONGUE CARCINOMA STAGE IV [None]
